FAERS Safety Report 8909940 (Version 1)
Quarter: 2012Q4

REPORT INFORMATION
  Report Type: 
  Country: US (occurrence: US)
  Receive Date: 20121115
  Receipt Date: 20121115
  Transmission Date: 20130627
  Serious: No
  Sender: FDA-Public Use
  Company Number: US-PFIZER INC-2012281557

PATIENT
  Age: 66 Year
  Sex: Female
  Weight: 62.13 kg

DRUGS (4)
  1. ELELYSO [Suspect]
     Indication: GAUCHER^S DISEASE
     Dosage: 60 IU, every alternate week
  2. NAPROXEN [Concomitant]
     Indication: JOINT DISORDER
     Dosage: 500 mg, 2x/day
  3. NAPROXEN [Concomitant]
     Indication: INFLAMMATION
     Dosage: 500 mg, daily
  4. POTASSIUM CITRATE [Concomitant]
     Indication: BLADDER DISORDER
     Dosage: 10 mEq, 2x/day

REACTIONS (1)
  - Epistaxis [Recovered/Resolved]
